FAERS Safety Report 5553738-7 (Version None)
Quarter: 2007Q4

REPORT INFORMATION
  Report Type: 
  Country: None (occurrence: None)
  Receive Date: 20071211
  Receipt Date: 20071129
  Transmission Date: 20080405
  Serious: Yes (Other)
  Sender: FDA-Public Use
  Company Number: GXKR2007US10247

PATIENT
  Age: 55 Year
  Sex: Male

DRUGS (2)
  1. METHADONE HCL [Suspect]
  2. INTERFERON(INTERFERON) [Suspect]
     Indication: HEPATITIS C

REACTIONS (7)
  - APNOEIC ATTACK [None]
  - DRUG INTERACTION [None]
  - DRUG INTOLERANCE [None]
  - MEDICAL DEVICE DISCOMFORT [None]
  - SLEEP APNOEA SYNDROME [None]
  - SNORING [None]
  - SOMNOLENCE [None]
